FAERS Safety Report 7110452-4 (Version None)
Quarter: 2010Q4

REPORT INFORMATION
  Report Type: 
  Country: None (occurrence: None)
  Receive Date: 20101118
  Receipt Date: 20101104
  Transmission Date: 20110411
  Serious: Yes (Hospitalization)
  Sender: FDA-Public Use
  Company Number: ES-GENENTECH-309511

PATIENT
  Age: 80 Year
  Sex: Male

DRUGS (3)
  1. LUCENTIS [Suspect]
     Indication: MACULAR DEGENERATION
     Dosage: UNK
     Route: 031
     Dates: start: 20100520
  2. LUCENTIS [Suspect]
     Dosage: UNK
     Route: 031
     Dates: start: 20100706
  3. LUCENTIS [Suspect]
     Dosage: UNK
     Route: 031
     Dates: start: 20100809

REACTIONS (1)
  - MYOCARDIAL INFARCTION [None]
